FAERS Safety Report 7354043-9 (Version None)
Quarter: 2011Q1

REPORT INFORMATION
  Report Type: 
  Country: None (occurrence: None)
  Receive Date: 20110315
  Receipt Date: 20110311
  Transmission Date: 20110831
  Serious: Yes (Life-Threatening, Hospitalization)
  Sender: FDA-Public Use
  Company Number: US-GILEAD-2011-0036217

PATIENT
  Sex: Male
  Weight: 59.928 kg

DRUGS (24)
  1. SINGULAIR [Concomitant]
  2. FOLIC ACID [Concomitant]
  3. HYPERTONIC NEBS [Concomitant]
  4. DUONEB [Concomitant]
     Indication: CHRONIC OBSTRUCTIVE PULMONARY DISEASE
  5. ALBUTEROL [Concomitant]
  6. ADVAIR DISKUS 100/50 [Concomitant]
  7. COMBIVENT [Concomitant]
     Indication: CHRONIC OBSTRUCTIVE PULMONARY DISEASE
  8. ZITHROMAX [Concomitant]
  9. NOVOLOG [Concomitant]
  10. DUONEB [Concomitant]
     Indication: BRONCHOSPASM
  11. CAYSTON [Suspect]
     Indication: CYSTIC FIBROSIS
     Route: 055
     Dates: start: 20110207, end: 20110207
  12. ASCORBIC ACID [Concomitant]
  13. MULTI-VITAMIN [Concomitant]
  14. OXYGEN [Concomitant]
  15. ZOCOR [Concomitant]
  16. RANITIDINE HCL [Concomitant]
  17. ASPIRIN [Concomitant]
  18. COMBIVENT [Concomitant]
     Indication: BRONCHOSPASM
  19. PANCREASE MT 20 [Concomitant]
  20. CALCIUM-D [Concomitant]
  21. CAYSTON [Suspect]
     Dates: start: 20100401
  22. LISINOPRIL [Concomitant]
  23. PEPCID [Concomitant]
  24. CALCIUM CARBONATE [Concomitant]

REACTIONS (3)
  - CHEST PAIN [None]
  - TROPONIN INCREASED [None]
  - BRONCHOSPASM [None]
